FAERS Safety Report 8460852-5 (Version None)
Quarter: 2012Q2

REPORT INFORMATION
  Report Type: 
  Country: None (occurrence: None)
  Receive Date: 20120624
  Receipt Date: 20120619
  Transmission Date: 20120825
  Serious: Yes (Hospitalization, Other)
  Sender: FDA-Public Use
  Company Number: US-AMGEN-USASP2012038052

PATIENT
  Age: 63 Year
  Sex: Female

DRUGS (1)
  1. ENBREL [Suspect]
     Indication: RHEUMATOID ARTHRITIS
     Dosage: 50 MG, QWK
     Dates: start: 20080225

REACTIONS (8)
  - RHEUMATOID ARTHRITIS [None]
  - TEMPOROMANDIBULAR JOINT SYNDROME [None]
  - SKIN MASS [None]
  - HAND DEFORMITY [None]
  - UTERINE CANCER [None]
  - PAIN [None]
  - GAIT DISTURBANCE [None]
  - HYSTERECTOMY [None]
